FAERS Safety Report 4817982-6 (Version None)
Quarter: 2005Q4

REPORT INFORMATION
  Report Type: 
  Country: None (occurrence: None)
  Receive Date: 20051102
  Receipt Date: 20051026
  Transmission Date: 20060501
  Serious: Yes (Disabling)
  Sender: FDA-Public Use
  Company Number: FR-JNJFOC-20050507188

PATIENT
  Age: 63 Year
  Sex: Male

DRUGS (6)
  1. REMICADE [Suspect]
     Route: 042
  2. REMICADE [Suspect]
     Route: 042
  3. REMICADE [Suspect]
     Indication: RHEUMATOID ARTHRITIS
     Route: 042
  4. NOVATREX [Concomitant]
     Indication: RHEUMATOID ARTHRITIS
  5. CORTANCYL [Concomitant]
     Indication: RHEUMATOID ARTHRITIS
  6. SPECIAFOLDINE [Concomitant]
     Indication: RHEUMATOID ARTHRITIS

REACTIONS (2)
  - HYPERKERATOSIS [None]
  - SQUAMOUS CELL CARCINOMA [None]
